FAERS Safety Report 13360655 (Version 3)
Quarter: 2017Q2

REPORT INFORMATION
  Report Type: Report from Study
  Country: JP (occurrence: JP)
  Receive Date: 20170322
  Receipt Date: 20170503
  Transmission Date: 20170830
  Serious: Yes (Death, Hospitalization)
  Sender: FDA-Public Use
  Company Number: JP-ACTELION-A-CH2017-151088

PATIENT
  Age: 86 Year
  Sex: Female

DRUGS (10)
  1. ALDACTONE [Concomitant]
     Active Substance: SPIRONOLACTONE
  2. ADCIRCA [Concomitant]
     Active Substance: TADALAFIL
  3. OXYGEN. [Concomitant]
     Active Substance: OXYGEN
  4. OPSUMIT [Suspect]
     Active Substance: MACITENTAN
     Indication: PULMONARY ARTERIAL HYPERTENSION
     Dosage: 10 MG, QD
     Route: 048
     Dates: start: 20160914, end: 20161121
  5. DIART [Concomitant]
     Active Substance: AZOSEMIDE
  6. TRACLEER [Suspect]
     Active Substance: BOSENTAN
     Indication: PULMONARY ARTERIAL HYPERTENSION
     Dosage: 62.5 MG, QD
     Route: 048
     Dates: start: 20160526, end: 20160829
  7. TRACLEER [Suspect]
     Active Substance: BOSENTAN
     Dosage: 62.5 MG, BID
     Route: 048
     Dates: start: 20160830, end: 20160913
  8. ELIQUIS [Concomitant]
     Active Substance: APIXABAN
  9. JUVELA N [Concomitant]
     Active Substance: TOCOPHERYL NICOTINATE, D-.ALPHA.
  10. DORNER [Concomitant]
     Active Substance: BERAPROST SODIUM

REACTIONS (7)
  - Jaundice cholestatic [Fatal]
  - Gastric cancer [Fatal]
  - Gastrointestinal haemorrhage [Fatal]
  - Metastatic gastric cancer [Fatal]
  - Pulmonary arterial hypertension [Unknown]
  - Discoloured vomit [Fatal]
  - Condition aggravated [Unknown]

NARRATIVE: CASE EVENT DATE: 20161006
